FAERS Safety Report 7103671-4 (Version None)
Quarter: 2010Q4

REPORT INFORMATION
  Report Type: 
  Country: None (occurrence: None)
  Receive Date: 20101115
  Receipt Date: 20091026
  Transmission Date: 20110411
  Serious: No
  Sender: FDA-Public Use
  Company Number: US-KINGPHARMUSA00001-K200901330

PATIENT
  Sex: Female
  Weight: 69.388 kg

DRUGS (5)
  1. LEVOXYL [Suspect]
     Indication: HYPOTHYROIDISM
     Dosage: 100 MCG, QD FIVE DAYS A WEEK
     Route: 048
  2. LEVOXYL [Suspect]
     Dosage: 50 MCG, QD TWO DAYS A WEEK
     Route: 048
     Dates: end: 20091001
  3. LEVOXYL [Suspect]
     Dosage: UNK
     Route: 048
     Dates: start: 20030101
  4. CLARITIN [Suspect]
     Indication: HYPERSENSITIVITY
     Dosage: UNK
  5. DOXYCYCLINE [Concomitant]
     Dosage: 100 MCG, QD
     Dates: start: 20091009, end: 20091019

REACTIONS (10)
  - ABDOMINAL DISCOMFORT [None]
  - DRY MOUTH [None]
  - DYSPEPSIA [None]
  - FEELING ABNORMAL [None]
  - FLUSHING [None]
  - HYPERHIDROSIS [None]
  - INSOMNIA [None]
  - NASAL DRYNESS [None]
  - PAIN [None]
  - PALPITATIONS [None]
